FAERS Safety Report 15355651 (Version 1)
Quarter: 2018Q3

REPORT INFORMATION
  Report Type: Spontaneous
  Country: FR (occurrence: FR)
  Receive Date: 20180906
  Receipt Date: 20180906
  Transmission Date: 20181010
  Serious: Yes (Life-Threatening, Hospitalization, Other)
  Sender: FDA-Public Use
  Company Number: FR-MACLEODS PHARMACEUTICALS US LTD-MAC2018016505

PATIENT

DRUGS (14)
  1. ZUCLOPENTHIXOL DECANOATE [Interacting]
     Active Substance: ZUCLOPENTHIXOL DECANOATE
     Indication: SCHIZOAFFECTIVE DISORDER
     Dosage: 300 MILLIGRAM, 1 MONTH, INJECTION
     Route: 065
  2. NOREPINEPHRINE. [Concomitant]
     Active Substance: NOREPINEPHRINE
     Indication: HYPOTENSION
     Dosage: 4 MG/HOUR
     Route: 042
  3. CYAMEMAZINE [Suspect]
     Active Substance: CYAMEMAZINE
     Indication: SCHIZOAFFECTIVE DISORDER
     Dosage: UNK, 50 MG TO 100 MG DAILY
     Route: 065
  4. CYAMEMAZINE [Suspect]
     Active Substance: CYAMEMAZINE
     Dosage: 50 MILLIGRAM, QD
     Route: 065
  5. ZUCLOPENTHIXOL ACETATE [Interacting]
     Active Substance: ZUCLOPENTHIXOL ACETATE
     Indication: PRODUCT USED FOR UNKNOWN INDICATION
     Dosage: 100 MILLIGRAM
     Route: 030
  6. METFORMIN HYDROCHLORIDE. [Concomitant]
     Active Substance: METFORMIN HYDROCHLORIDE
     Indication: TYPE 2 DIABETES MELLITUS
     Dosage: UNK
     Route: 065
  7. LERCANIDIPINE [Suspect]
     Active Substance: LERCANIDIPINE
     Indication: HYPERTENSION
     Dosage: 300 MILLIGRAM, 1 TOTAL, TABLET
     Route: 048
  8. BISOPROLOL [Concomitant]
     Active Substance: BISOPROLOL
     Indication: PRODUCT USED FOR UNKNOWN INDICATION
     Dosage: UNK
     Route: 065
  9. CYAMEMAZINE [Suspect]
     Active Substance: CYAMEMAZINE
     Indication: SUICIDAL IDEATION
     Dosage: UNK, 25 MG TO 75 MG DAILY
     Route: 065
  10. LERCANIDIPINE [Suspect]
     Active Substance: LERCANIDIPINE
     Indication: SUICIDAL IDEATION
     Dosage: UNK
     Route: 065
  11. ESCITALOPRAM OXALATE. [Suspect]
     Active Substance: ESCITALOPRAM OXALATE
     Indication: DEPRESSIVE SYMPTOM
     Dosage: 10 MILLIGRAM, QD
     Route: 065
  12. CYAMEMAZINE [Suspect]
     Active Substance: CYAMEMAZINE
     Dosage: 750 MILLIGRAM, 1 TOTAL, TABLET
     Route: 048
  13. ZUCLOPENTHIXOL HYDROCHLORIDE [Interacting]
     Active Substance: ZUCLOPENTHIXOL HYDROCHLORIDE
     Indication: SCHIZOAFFECTIVE DISORDER
     Dosage: UNK, TITRATED FROM 5 TO 40MG DAILY OVER 2 WEEKS
     Route: 048
  14. ATORVASTATIN [Concomitant]
     Active Substance: ATORVASTATIN
     Indication: PRODUCT USED FOR UNKNOWN INDICATION
     Dosage: UNK
     Route: 065

REACTIONS (8)
  - Drug administration error [Unknown]
  - Drug interaction [Unknown]
  - Accidental overdose [Unknown]
  - Intentional overdose [Unknown]
  - Vasoplegia syndrome [Recovered/Resolved]
  - Neuroleptic malignant syndrome [Recovered/Resolved]
  - Dehydration [Unknown]
  - Drug level increased [Unknown]
